FAERS Safety Report 5907475-7 (Version None)
Quarter: 2008Q4

REPORT INFORMATION
  Report Type: 
  Country: None (occurrence: None)
  Receive Date: 20081003
  Receipt Date: 20081001
  Transmission Date: 20090506
  Serious: Yes (Death)
  Sender: FDA-Public Use
  Company Number: B0539517A

PATIENT
  Age: 32 Year
  Sex: Female

DRUGS (3)
  1. PAXIL [Suspect]
     Indication: DEPRESSION
     Dosage: 20MG PER DAY
     Route: 048
  2. SEROQUEL [Concomitant]
     Route: 048
  3. ARTANE [Concomitant]
     Route: 048

REACTIONS (1)
  - COMPLETED SUICIDE [None]
